FAERS Safety Report 4838592-0 (Version None)
Quarter: 2005Q4

REPORT INFORMATION
  Report Type: 
  Country: None (occurrence: None)
  Receive Date: 20051024
  Receipt Date: 20050803
  Transmission Date: 20060501
  Serious: No
  Sender: FDA-Public Use
  Company Number: 216685

PATIENT
  Sex: Female

DRUGS (1)
  1. XOLAIR [Suspect]
     Indication: ASTHMA
     Dosage: 300 MG, Q4W, SUBCUTANEOUS
     Route: 058
     Dates: start: 20050701, end: 20050801

REACTIONS (1)
  - INJECTION SITE PAIN [None]
